FAERS Safety Report 9324464 (Version 1)
Quarter: 2013Q2

REPORT INFORMATION
  Report Type: Report from Study
  Country: CA (occurrence: CA)
  Receive Date: 20130603
  Receipt Date: 20130603
  Transmission Date: 20140414
  Serious: Yes (Hospitalization)
  Sender: FDA-Public Use
  Company Number: CA-JNJFOC-20130303341

PATIENT
  Age: 22 Year
  Sex: Male
  Weight: 109.1 kg

DRUGS (4)
  1. REMICADE [Suspect]
     Indication: COLITIS ULCERATIVE
     Route: 042
     Dates: start: 20120131
  2. REMICADE [Suspect]
     Indication: COLITIS ULCERATIVE
     Route: 042
     Dates: start: 20130122, end: 20130417
  3. TYLENOL [Concomitant]
     Indication: PREMEDICATION
     Route: 065
  4. ACETAMINOPHEN [Concomitant]
     Indication: PREMEDICATION
     Route: 065

REACTIONS (1)
  - Enterostomy [Unknown]
